FAERS Safety Report 9521436 (Version 2)
Quarter: 2013Q4

REPORT INFORMATION
  Report Type: Spontaneous
  Country: US (occurrence: None)
  Receive Date: 20130909
  Receipt Date: 20131009
  Transmission Date: 20140711
  Serious: Yes (Other)
  Sender: FDA-Public Use
  Company Number: 2013037780

PATIENT
  Sex: Female

DRUGS (1)
  1. HIZENTRA (IMMUNOGLOBULIN HUMAN NORMAL) [Suspect]

REACTIONS (7)
  - Convulsion [None]
  - Alopecia [None]
  - Weight decreased [None]
  - Headache [None]
  - Infusion site mass [None]
  - Meningitis aseptic [None]
  - Heart rate increased [None]
